FAERS Safety Report 13094348 (Version 3)
Quarter: 2018Q1

REPORT INFORMATION
  Report Type: Spontaneous
  Country: US (occurrence: US)
  Receive Date: 20170106
  Receipt Date: 20180321
  Transmission Date: 20180508
  Serious: No
  Sender: FDA-Public Use
  Company Number: US-PFIZER INC-2017004092

PATIENT
  Age: 48 Year
  Sex: Female
  Weight: 89.8 kg

DRUGS (10)
  1. NORCO [Concomitant]
     Active Substance: ACETAMINOPHEN\HYDROCODONE BITARTRATE
     Dosage: 1 DF, 3X/DAY (HYDROCODONE BITARTRATE: 7.5MG / PARACETAMOL: 325 MG)
  2. FISH OIL [Concomitant]
     Active Substance: FISH OIL
     Indication: INTERVERTEBRAL DISC DEGENERATION
     Dosage: 4 DF, 1X/DAY
     Route: 048
  3. MELOXICAM. [Concomitant]
     Active Substance: MELOXICAM
     Indication: ARTHRITIS
     Dosage: 15 MG, 1X/DAY
     Route: 048
  4. CLARITIN [Concomitant]
     Active Substance: LORATADINE
     Indication: HYPERSENSITIVITY
     Dosage: 10 MG, 1X/DAY
     Route: 048
  5. LYRICA [Suspect]
     Active Substance: PREGABALIN
     Dosage: 75 MG, UNK
  6. LYRICA [Suspect]
     Active Substance: PREGABALIN
     Dosage: 75 MG, 3X/DAY
     Route: 048
  7. LYRICA [Suspect]
     Active Substance: PREGABALIN
     Indication: FIBROMYALGIA
     Dosage: 50 MG, 3X/DAY
  8. CALCIUM [Concomitant]
     Active Substance: CALCIUM
     Indication: EXOSTOSIS
     Dosage: 8 DF, 1X/DAY
     Route: 048
  9. ROPINIROLE. [Concomitant]
     Active Substance: ROPINIROLE
     Indication: RESTLESS LEGS SYNDROME
     Dosage: 0.5 MG, 1X/DAY
  10. FISH OIL [Concomitant]
     Active Substance: FISH OIL
     Indication: NERVE COMPRESSION

REACTIONS (6)
  - Pain [Unknown]
  - Insomnia [Unknown]
  - Product use issue [Unknown]
  - Mobility decreased [Unknown]
  - Drug effect incomplete [Unknown]
  - Headache [Unknown]
